FAERS Safety Report 5985256-6 (Version None)
Quarter: 2008Q4

REPORT INFORMATION
  Report Type: 
  Country: None (occurrence: None)
  Receive Date: 20081203
  Receipt Date: 20081117
  Transmission Date: 20090506
  Serious: Yes (Life-Threatening, Hospitalization)
  Sender: FDA-Public Use
  Company Number: 8038003

PATIENT
  Age: 3 Day
  Sex: Male

DRUGS (2)
  1. KEPPRA [Suspect]
     Dosage: TRP
     Route: 064
  2. KEPPRA [Suspect]
     Dosage: TRM
     Route: 063

REACTIONS (7)
  - ANAEMIA NEONATAL [None]
  - BLOOD BILIRUBIN INCREASED [None]
  - CAESAREAN SECTION [None]
  - CYANOSIS NEONATAL [None]
  - DRUG EXPOSURE VIA BREAST MILK [None]
  - HEART RATE INCREASED [None]
  - INFANTILE APNOEIC ATTACK [None]
